FAERS Safety Report 22061872 (Version 1)
Quarter: 2023Q1

REPORT INFORMATION
  Report Type: Spontaneous
  Country: PT (occurrence: PT)
  Receive Date: 20230304
  Receipt Date: 20230304
  Transmission Date: 20230418
  Serious: Yes (Hospitalization)
  Sender: FDA-Public Use
  Company Number: None

PATIENT
  Age: 70 Year
  Sex: Male
  Weight: 60 kg

DRUGS (9)
  1. FLUOROURACIL [Suspect]
     Active Substance: FLUOROURACIL
     Indication: Colon cancer metastatic
     Dosage: BOLUS 200 MG/M2 AND D1 AND INFUSION 2 DAYS 4000 MG/M 2 CYCLES OF 14 DAYS
     Dates: start: 20230118
  2. IRINOTECAN [Suspect]
     Active Substance: IRINOTECAN
     Indication: Colon cancer metastatic
     Dosage: 180MG/M2 PER DAY 1 CYCLE OF 14 DAYS (1ST CYCLE)
     Dates: start: 20230118
  3. CETUXIMAB [Concomitant]
     Active Substance: CETUXIMAB
     Dosage: 500
  4. NEBIVOLOL [Concomitant]
     Active Substance: NEBIVOLOL
  5. PANTOPRAZOLE SODIUM [Concomitant]
     Active Substance: PANTOPRAZOLE SODIUM
  6. FERRUM HAUSMANN [Concomitant]
  7. LEVOLEUCOVORIN DISODIUM [Concomitant]
     Active Substance: LEVOLEUCOVORIN DISODIUM
  8. FOLIC ACID [Concomitant]
     Active Substance: FOLIC ACID
  9. SIMVASTATIN [Concomitant]
     Active Substance: SIMVASTATIN

REACTIONS (1)
  - Febrile neutropenia [Recovered/Resolved]

NARRATIVE: CASE EVENT DATE: 20230128
